FAERS Safety Report 6577770-X (Version None)
Quarter: 2010Q1

REPORT INFORMATION
  Report Type: 
  Country: None (occurrence: None)
  Receive Date: 20100211
  Receipt Date: 20100203
  Transmission Date: 20100710
  Serious: Yes (Other)
  Sender: FDA-Public Use
  Company Number: FR-ROCHE-651390

PATIENT
  Age: 38 Year
  Sex: Female
  Weight: 59 kg

DRUGS (4)
  1. AVASTIN [Suspect]
     Route: 042
     Dates: start: 20080701, end: 20090701
  2. TAXOL [Suspect]
     Route: 065
  3. DI-ANTALVIC [Concomitant]
  4. CODOLIPRANE [Concomitant]
     Dosage: DOSE REPORTED AS 2 TABLETS X3.
     Route: 048

REACTIONS (1)
  - PANCREATITIS [None]
